FAERS Safety Report 8937177 (Version 1)
Quarter: 2012Q4

REPORT INFORMATION
  Report Type: Spontaneous
  Country: US (occurrence: None)
  Receive Date: 20121128
  Receipt Date: 20121128
  Transmission Date: 20130627
  Serious: No
  Sender: FDA-Public Use
  Company Number: None

PATIENT
  Age: 67 Year
  Sex: Female
  Weight: 70.31 kg

DRUGS (1)
  1. PEG-3350 AND ELECTROLYTES [Suspect]
     Indication: COLONOSCOPY
     Dosage: 1 glas (total 8) every 15 mins
     Dates: start: 20121023

REACTIONS (2)
  - Burning sensation [None]
  - Proctalgia [None]
